FAERS Safety Report 7826145-1 (Version None)
Quarter: 2011Q4

REPORT INFORMATION
  Report Type: 
  Country: None (occurrence: None)
  Receive Date: 20111019
  Receipt Date: 20111010
  Transmission Date: 20120403
  Serious: Yes (Disabling, Other)
  Sender: FDA-Public Use
  Company Number: US-ASTRAZENECA-2011SE11389

PATIENT
  Age: 58 Year
  Sex: Female

DRUGS (4)
  1. XANAX [Concomitant]
  2. TEMAZEPAM [Concomitant]
  3. NEXIUM [Suspect]
     Route: 048
  4. PREVACID [Concomitant]

REACTIONS (18)
  - HYPERCHLORHYDRIA [None]
  - WEIGHT INCREASED [None]
  - OSTEOARTHRITIS [None]
  - POLLAKIURIA [None]
  - HEADACHE [None]
  - DRY MOUTH [None]
  - LUNG NEOPLASM [None]
  - BLADDER PAIN [None]
  - APHAGIA [None]
  - LIMB PROSTHESIS USER [None]
  - PULMONARY CONGESTION [None]
  - GASTRIC DISORDER [None]
  - MALAISE [None]
  - DRUG INEFFECTIVE [None]
  - ARTHRITIS [None]
  - OSTEOPOROSIS [None]
  - HIATUS HERNIA [None]
  - HEPATITIS [None]
